FAERS Safety Report 20171788 (Version 1)
Quarter: 2021Q4

REPORT INFORMATION
  Report Type: Spontaneous
  Country: CN (occurrence: CN)
  Receive Date: 20211210
  Receipt Date: 20211210
  Transmission Date: 20220303
  Serious: Yes (Other)
  Sender: FDA-Public Use
  Company Number: CN-PFIZER INC-202101676775

PATIENT
  Age: 31 Year
  Sex: Female
  Weight: 55 kg

DRUGS (2)
  1. AZITHROMYCIN [Suspect]
     Active Substance: AZITHROMYCIN
     Indication: Pelvic inflammatory disease
     Dosage: 1000 MG, 1X/DAY
     Route: 041
     Dates: start: 20211119, end: 20211119
  2. CHLORIDE SODIUM [Concomitant]
     Indication: Pelvic inflammatory disease
     Dosage: 250 ML, 1X/DAY
     Route: 041
     Dates: start: 20211119, end: 20211119

REACTIONS (3)
  - Infusion site pruritus [Recovered/Resolved]
  - Infusion site pain [Recovered/Resolved]
  - Off label use [Unknown]

NARRATIVE: CASE EVENT DATE: 20211119
